FAERS Safety Report 10730864 (Version 2)
Quarter: 2015Q1

REPORT INFORMATION
  Report Type: Spontaneous
  Country: US (occurrence: US)
  Receive Date: 20150122
  Receipt Date: 20150123
  Transmission Date: 20150721
  Serious: Yes (Other)
  Sender: FDA-Public Use
  Company Number: PHHY2015US006578

PATIENT
  Age: 59 Year
  Sex: Male

DRUGS (1)
  1. CICLOSPORIN [Suspect]
     Active Substance: CYCLOSPORINE
     Indication: IMMUNOSUPPRESSION
     Dosage: 60 MG, QD
     Route: 065

REACTIONS (2)
  - Paraesthesia [Recovered/Resolved]
  - Chronic inflammatory demyelinating polyradiculoneuropathy [Unknown]
